FAERS Safety Report 17344426 (Version 1)
Quarter: 2020Q1

REPORT INFORMATION
  Report Type: Spontaneous
  Country: US (occurrence: US)
  Receive Date: 20200129
  Receipt Date: 20200129
  Transmission Date: 20200409
  Serious: No
  Sender: FDA-Public Use
  Company Number: US-ALLERGAN-1940042US

PATIENT
  Age: 37 Year
  Sex: Female
  Weight: 61.22 kg

DRUGS (20)
  1. BOTOX [Suspect]
     Active Substance: ONABOTULINUMTOXINA
     Indication: MUSCLE SPASTICITY
     Dosage: 150 UNITS, SINGLE
     Dates: start: 20190930, end: 20190930
  2. IBUPROFEN. [Concomitant]
     Active Substance: IBUPROFEN
  3. DESMOPRESSIN [Concomitant]
     Active Substance: DESMOPRESSIN
  4. CRANBERRY CHEW TAB [Concomitant]
  5. MELATONIN [Concomitant]
     Active Substance: MELATONIN
  6. BOTOX [Suspect]
     Active Substance: ONABOTULINUMTOXINA
     Indication: BLADDER DISORDER
     Dosage: 100 UNITS, SINGLE
     Dates: start: 20190627, end: 20190627
  7. BOTOX [Suspect]
     Active Substance: ONABOTULINUMTOXINA
     Dosage: 200 UNITS, SINGLE
     Dates: start: 20190521, end: 20190521
  8. BOTOX [Suspect]
     Active Substance: ONABOTULINUMTOXINA
     Dosage: 87.5 UNITS, SINGLE
     Dates: start: 20190327, end: 20190327
  9. BOTOX [Suspect]
     Active Substance: ONABOTULINUMTOXINA
     Dosage: 87.5 UNITS, SINGLE
     Dates: start: 20181220, end: 20181220
  10. MAGNESIUM OXIDE. [Concomitant]
     Active Substance: MAGNESIUM OXIDE
  11. LECITHIN [Concomitant]
     Active Substance: LECITHIN
  12. BOTOX [Suspect]
     Active Substance: ONABOTULINUMTOXINA
     Dosage: 112.5 UNITS, SINGLE
     Dates: start: 20181220, end: 20181220
  13. SPIRONOLACTONE. [Concomitant]
     Active Substance: SPIRONOLACTONE
  14. FIBER ADULT GUMMIES CHEW TAB [Concomitant]
  15. MIRENA [Concomitant]
     Active Substance: LEVONORGESTREL
  16. BOTOX [Suspect]
     Active Substance: ONABOTULINUMTOXINA
     Dosage: 100 UNITS, SINGLE
     Dates: start: 20190321, end: 20190321
  17. TYLENOL [Concomitant]
     Active Substance: ACETAMINOPHEN
  18. MULTIVITAMIN [Concomitant]
     Active Substance: VITAMINS
  19. BOTOX [Suspect]
     Active Substance: ONABOTULINUMTOXINA
     Dosage: 300 UNITS, SINGLE
     Dates: start: 20181210, end: 20181210
  20. NITROFURANTOIN. [Concomitant]
     Active Substance: NITROFURANTOIN

REACTIONS (6)
  - Fall [Recovered/Resolved]
  - Overdose [Unknown]
  - Injected limb mobility decreased [Recovered/Resolved]
  - Grip strength decreased [Recovered/Resolved]
  - Gait disturbance [Recovered/Resolved]
  - Muscular weakness [Recovered/Resolved]

NARRATIVE: CASE EVENT DATE: 201812
